FAERS Safety Report 13194952 (Version 3)
Quarter: 2017Q1

REPORT INFORMATION
  Report Type: Report from Study
  Country: US (occurrence: US)
  Receive Date: 20170207
  Receipt Date: 20170331
  Transmission Date: 20170428
  Serious: Yes (Hospitalization, Other)
  Sender: FDA-Public Use
  Company Number: US-GILEAD-2017-0256751

PATIENT
  Age: 17 Year
  Sex: Male
  Weight: 57.37 kg

DRUGS (30)
  1. CREON [Concomitant]
     Active Substance: PANCRELIPASE AMYLASE\PANCRELIPASE LIPASE\PANCRELIPASE PROTEASE
  2. NASONEX [Concomitant]
     Active Substance: MOMETASONE FUROATE
  3. AZTREONAM LYSINE [Suspect]
     Active Substance: AZTREONAM LYSINE
     Indication: CYSTIC FIBROSIS LUNG
     Dosage: 75 MG, UNK
     Route: 055
     Dates: start: 20150522
  4. GLUCAGON. [Concomitant]
     Active Substance: GLUCAGON
  5. SALINE                             /00075401/ [Concomitant]
     Active Substance: SODIUM CHLORIDE
  6. BETHKIS [Concomitant]
     Active Substance: TOBRAMYCIN
  7. NUTREN 1.5 [Concomitant]
     Active Substance: DIETARY SUPPLEMENT
  8. VITAMIN D3 [Concomitant]
     Active Substance: CHOLECALCIFEROL
  9. VITAMIN D                          /00107901/ [Concomitant]
     Active Substance: ERGOCALCIFEROL
  10. CYPROHEPTADINE HCL [Concomitant]
     Active Substance: CYPROHEPTADINE HYDROCHLORIDE
  11. HYPERSAL [Concomitant]
  12. LANTUS [Concomitant]
     Active Substance: INSULIN GLARGINE
  13. INSULIN [Concomitant]
     Active Substance: INSULIN NOS
  14. PULMOZYME [Concomitant]
     Active Substance: DORNASE ALFA
  15. SYMBICORT [Concomitant]
     Active Substance: BUDESONIDE\FORMOTEROL FUMARATE DIHYDRATE
  16. AZTREONAM LYSINE [Suspect]
     Active Substance: AZTREONAM LYSINE
     Indication: BACTERIAL DISEASE CARRIER
  17. ALBUTEROL SULFATE. [Concomitant]
     Active Substance: ALBUTEROL SULFATE
  18. SULFAMETHOXAZOLE AND TRIMETHOPRIM [Concomitant]
     Active Substance: SULFAMETHOXAZOLE\TRIMETHOPRIM
  19. AZTREONAM LYSINE [Suspect]
     Active Substance: AZTREONAM LYSINE
     Indication: PSEUDOMONAS INFECTION
  20. SINGULAIR [Concomitant]
     Active Substance: MONTELUKAST SODIUM
  21. VITAMIN K [Concomitant]
     Active Substance: PHYTONADIONE
  22. CALCIUM-CARBONAT [Concomitant]
  23. VENTOLIN HFA [Concomitant]
     Active Substance: ALBUTEROL SULFATE
  24. AZITHROMYCIN ANHYDROUS. [Concomitant]
     Active Substance: AZITHROMYCIN ANHYDROUS
  25. URSODIOL. [Concomitant]
     Active Substance: URSODIOL
  26. CETIRIZINE HCL [Concomitant]
     Active Substance: CETIRIZINE HYDROCHLORIDE
  27. COLISTIMETHATE SODIUM. [Concomitant]
     Active Substance: COLISTIMETHATE SODIUM
  28. ORKAMBI [Concomitant]
     Active Substance: IVACAFTOR\LUMACAFTOR
  29. EPIPEN [Concomitant]
     Active Substance: EPINEPHRINE
  30. AQUADEKS                           /07679501/ [Concomitant]
     Active Substance: MINERALS\VITAMINS

REACTIONS (4)
  - Cystic fibrosis [Recovered/Resolved]
  - Pseudomonas infection [Recovered/Resolved]
  - Multiple-drug resistance [Recovered/Resolved]
  - Drug ineffective [Unknown]

NARRATIVE: CASE EVENT DATE: 20170116
